FAERS Safety Report 9618714 (Version 2)
Quarter: 2013Q4

REPORT INFORMATION
  Report Type: Spontaneous
  Country: PL (occurrence: PL)
  Receive Date: 20131014
  Receipt Date: 20131024
  Transmission Date: 20140711
  Serious: Yes (Other)
  Sender: FDA-Public Use
  Company Number: PL-AMGEN-POLSP2013070375

PATIENT
  Age: 65 Year
  Sex: Female

DRUGS (9)
  1. PROLIA [Suspect]
     Indication: OSTEOPOROSIS
     Dosage: UNK
     Route: 065
     Dates: start: 201204
  2. ALLOPURINOL [Concomitant]
  3. AMLODIPINE [Concomitant]
  4. BISOPROLOL [Concomitant]
  5. SPIRONOLACTONE [Concomitant]
  6. VESSEL DUE [Concomitant]
  7. POLOCARD [Concomitant]
  8. VITAMIN D                          /00107901/ [Concomitant]
  9. HYALURONIC ACID                    /06536401/ [Concomitant]

REACTIONS (7)
  - Impaired healing [Unknown]
  - Hypoaesthesia [Unknown]
  - Muscle tightness [Unknown]
  - Urinary incontinence [Unknown]
  - Tooth extraction [Unknown]
  - Osteoarthritis [Unknown]
  - Malaise [Unknown]
